FAERS Safety Report 17245876 (Version 1)
Quarter: 2020Q1

REPORT INFORMATION
  Report Type: Spontaneous
  Country: DK (occurrence: DK)
  Receive Date: 20200108
  Receipt Date: 20200108
  Transmission Date: 20200409
  Serious: Yes (Hospitalization)
  Sender: FDA-Public Use
  Company Number: DK-ACCORD-168857

PATIENT
  Age: 76 Year
  Sex: Male

DRUGS (12)
  1. QUETIAPINE ACCORD [Suspect]
     Active Substance: QUETIAPINE
     Indication: SCHIZOPHRENIA
     Dosage: STRENGTH: 300 MG
     Route: 048
     Dates: start: 20151111, end: 20191202
  2. MIRTAZAPIE ACTAVIS [Concomitant]
     Indication: DEPRESSION
     Dosage: STRENGTH: 30 MG
     Route: 048
     Dates: start: 201506
  3. PANODIL [Concomitant]
     Active Substance: ACETAMINOPHEN
     Indication: PAIN
     Dosage: STRENGTH: 500 MG DOSAGE: 2 TABLETS AS NEEDED NO MORE THAN 3 TIMES DAILY
     Route: 048
     Dates: start: 201611
  4. ENALAPRIL KRKA [Concomitant]
     Active Substance: ENALAPRIL MALEATE
     Indication: HYPERTENSION
     Dosage: STRENGTH: 20+12,5 MG
     Route: 048
     Dates: start: 201511
  5. AMLODIPINE [Concomitant]
     Active Substance: AMLODIPINE BESYLATE
     Indication: HYPERTENSION
     Route: 048
     Dates: start: 201511
  6. BETOLVEX [Concomitant]
     Active Substance: CYANOCOBALAMIN
     Indication: VITAMIN B12 DEFICIENCY
     Dosage: STRENGTH: 1 MG
     Route: 048
     Dates: start: 201804
  7. BROMAM [Concomitant]
     Active Substance: BROMAZEPAM
     Indication: SEDATION
     Dosage: STRENGTH: 3 MG
     Route: 048
     Dates: start: 201511
  8. IMADRAX [Concomitant]
     Active Substance: AMOXICILLIN
     Indication: HELICOBACTER GASTRITIS
     Dosage: STRENGTH: 1000 MG
     Route: 048
     Dates: start: 20191127
  9. CLARITHROMYCIN ACCORD [Interacting]
     Active Substance: CLARITHROMYCIN
     Indication: HELICOBACTER GASTRITIS
     Dosage: STRENGTH: 500 MG.
     Route: 048
     Dates: start: 20191127, end: 20191202
  10. ATORVASTATIN ACTAVIS [Concomitant]
     Active Substance: ATORVASTATIN
     Indication: HYPERCHOLESTEROLAEMIA
     Dosage: STRENGTH: 40 MG
     Route: 048
     Dates: start: 201606
  11. METFORMIN ACTAVIS [Concomitant]
     Active Substance: METFORMIN HYDROCHLORIDE
     Indication: TYPE 2 DIABETES MELLITUS
     Dosage: STRENGTH: 500 MG
     Route: 048
     Dates: start: 201511
  12. PANTOLOC [Concomitant]
     Active Substance: PANTOPRAZOLE SODIUM
     Indication: GASTRIC ULCER
     Dosage: STRENGTH: 40 MG
     Route: 048
     Dates: start: 201910

REACTIONS (6)
  - Drug interaction [Unknown]
  - Anaemia [Unknown]
  - Tremor [Unknown]
  - Dehydration [Unknown]
  - Confusional state [Not Recovered/Not Resolved]
  - Renal impairment [Unknown]

NARRATIVE: CASE EVENT DATE: 201911
